FAERS Safety Report 13726202 (Version 2)
Quarter: 2018Q1

REPORT INFORMATION
  Report Type: Spontaneous
  Country: JP (occurrence: JP)
  Receive Date: 20170706
  Receipt Date: 20180201
  Transmission Date: 20180508
  Serious: Yes (Hospitalization)
  Sender: FDA-Public Use
  Company Number: JP-PFIZER INC-2017291375

PATIENT
  Age: 32 Year
  Sex: Male
  Weight: 64 kg

DRUGS (3)
  1. LEVOFOLINATE YAKULT [Suspect]
     Active Substance: LEVOLEUCOVORIN CALCIUM
     Indication: COLON CANCER
     Dosage: UNK UNK, 1X/DAY
     Route: 041
     Dates: start: 20170516, end: 20170516
  2. 5-FU [Concomitant]
     Active Substance: FLUOROURACIL
     Dosage: 4100 MG/BODY/D1-2 (2374.1 MG/M2/D1-2)
     Route: 040
  3. CAMPTO [Suspect]
     Active Substance: IRINOTECAN
     Indication: COLON CANCER
     Dosage: 250 MG, 1X/DAY (250 MG/BODY (144.8 MG.M2)
     Route: 041
     Dates: start: 20170516, end: 20170516

REACTIONS (2)
  - Liver disorder [Recovered/Resolved]
  - Diarrhoea [Unknown]

NARRATIVE: CASE EVENT DATE: 20170523
